FAERS Safety Report 10197065 (Version 2)
Quarter: 2014Q2

REPORT INFORMATION
  Report Type: Spontaneous
  Country: US (occurrence: US)
  Receive Date: 20140527
  Receipt Date: 20140606
  Transmission Date: 20141212
  Serious: Yes (Hospitalization)
  Sender: FDA-Public Use
  Company Number: US-GLAXOSMITHKLINE-A1073787A

PATIENT
  Age: 59 Year
  Sex: Female
  Weight: 90.9 kg

DRUGS (14)
  1. BENLYSTA [Suspect]
     Indication: SYSTEMIC LUPUS ERYTHEMATOSUS
     Route: 042
     Dates: start: 20140508, end: 201405
  2. DIGOXIN [Concomitant]
  3. LISINOPRIL [Concomitant]
  4. CARVEDILOL [Concomitant]
  5. ISOSORBIDE MONONITRATE [Concomitant]
  6. PLAVIX [Concomitant]
  7. ASPIRIN [Concomitant]
  8. MEDROL [Concomitant]
  9. AMLODIPINE [Concomitant]
  10. B12 COMPLEX [Concomitant]
  11. NORCO [Concomitant]
  12. ATIVAN [Concomitant]
  13. BENADRYL [Concomitant]
  14. SOLUMEDROL [Concomitant]

REACTIONS (13)
  - Shock [Recovered/Resolved]
  - Swelling face [Recovered/Resolved]
  - Odynophagia [Recovering/Resolving]
  - Dehydration [Recovering/Resolving]
  - Diarrhoea [Recovering/Resolving]
  - Malaise [Recovering/Resolving]
  - Flushing [Recovering/Resolving]
  - Pruritus [Recovering/Resolving]
  - Dyspnoea [Recovered/Resolved]
  - Hypotension [Recovered/Resolved]
  - Swollen tongue [Recovered/Resolved]
  - Anaphylactic reaction [Recovered/Resolved]
  - Hypersensitivity [Recovered/Resolved]
